FAERS Safety Report 4375716-6 (Version None)
Quarter: 2004Q2

REPORT INFORMATION
  Report Type: 
  Country: None (occurrence: None)
  Receive Date: 20040608
  Receipt Date: 20030212
  Transmission Date: 20050107
  Serious: Yes (Other)
  Sender: FDA-Public Use
  Company Number: 200310522BCC

PATIENT
  Age: 25 Year
  Sex: Female
  Weight: 57.1532 kg

DRUGS (1)
  1. ALEVE [Suspect]
     Indication: DYSMENORRHOEA
     Dosage: 440 MG ONCE, ORAL
     Route: 048
     Dates: start: 20030212

REACTIONS (7)
  - DYSPNOEA [None]
  - HEART RATE INCREASED [None]
  - HYPERSENSITIVITY [None]
  - PAIN IN EXTREMITY [None]
  - PELVIC PAIN [None]
  - PRURITUS [None]
  - SWELLING FACE [None]
